FAERS Safety Report 5811344-0 (Version None)
Quarter: 2008Q3

REPORT INFORMATION
  Report Type: 
  Country: None (occurrence: None)
  Receive Date: 20080710
  Receipt Date: 20080626
  Transmission Date: 20090109
  Serious: Yes (Other)
  Sender: FDA-Public Use
  Company Number: PHHY2008CA12516

PATIENT
  Age: 79 Year
  Sex: Female

DRUGS (1)
  1. VISUDYNE [Suspect]
     Dates: start: 20080401, end: 20080401

REACTIONS (3)
  - PURULENT DISCHARGE [None]
  - SKIN DISCOLOURATION [None]
  - WOUND [None]
